FAERS Safety Report 23492525 (Version 1)
Quarter: 2024Q1

REPORT INFORMATION
  Report Type: Other
  Country: ZA (occurrence: None)
  Receive Date: 20240207
  Receipt Date: 20240207
  Transmission Date: 20240410
  Serious: Yes (Other)
  Sender: FDA-Public Use
  Company Number: ZA-ROCHE-3498755

PATIENT
  Age: 52 Year
  Sex: Female

DRUGS (1)
  1. OCREVUS [Suspect]
     Active Substance: OCRELIZUMAB
     Indication: Primary progressive multiple sclerosis
     Dosage: 600 MG EVERY 6 MONTHS
     Route: 041
     Dates: start: 20230329

REACTIONS (6)
  - Magnetic resonance imaging head abnormal [Unknown]
  - Demyelination [Unknown]
  - Magnetic resonance imaging abnormal [Unknown]
  - Magnetic resonance imaging spinal abnormal [Unknown]
  - Cerebral atrophy [Unknown]
  - Magnetic resonance imaging abnormal [Unknown]

NARRATIVE: CASE EVENT DATE: 20230907
